FAERS Safety Report 20683480 (Version 2)
Quarter: 2023Q2

REPORT INFORMATION
  Report Type: Spontaneous
  Country: PT (occurrence: PT)
  Receive Date: 20220407
  Receipt Date: 20230421
  Transmission Date: 20230722
  Serious: Yes (Hospitalization, Other)
  Sender: FDA-Public Use
  Company Number: PT-MYLANLABS-2022M1013987

PATIENT
  Age: 77 Year
  Sex: Female

DRUGS (5)
  1. CIPROFLOXACIN [Interacting]
     Active Substance: CIPROFLOXACIN
     Indication: Urosepsis
     Dosage: UNK
  2. AMOXICILLIN\CLAVULANIC ACID [Interacting]
     Active Substance: AMOXICILLIN\CLAVULANIC ACID
     Indication: Urosepsis
     Dosage: UNK
     Route: 065
  3. PIPERACILLIN SODIUM\TAZOBACTAM SODIUM [Interacting]
     Active Substance: PIPERACILLIN SODIUM\TAZOBACTAM SODIUM
     Indication: Urosepsis
     Dosage: UNK
  4. FLUCONAZOLE [Interacting]
     Active Substance: FLUCONAZOLE
     Indication: Candida infection
     Dosage: UNK
  5. FLUCONAZOLE [Interacting]
     Active Substance: FLUCONAZOLE
     Indication: Candida infection
     Route: 065

REACTIONS (14)
  - Electrocardiogram QT prolonged [Recovered/Resolved]
  - Ventricular extrasystoles [Recovered/Resolved]
  - Supraventricular extrasystoles [Recovered/Resolved]
  - Electrocardiogram abnormal [Recovered/Resolved]
  - Pathogen resistance [Unknown]
  - Nodal rhythm [Recovered/Resolved]
  - Bradycardia [Recovered/Resolved]
  - Heart rate decreased [Recovered/Resolved]
  - Cardiotoxicity [Unknown]
  - Ventricular extrasystoles [Unknown]
  - Pyrexia [Unknown]
  - Drug interaction [Unknown]
  - Drug ineffective [Unknown]
  - Drug ineffective [Unknown]
